FAERS Safety Report 7777007-X (Version None)
Quarter: 2011Q3

REPORT INFORMATION
  Report Type: 
  Country: None (occurrence: None)
  Receive Date: 20110926
  Receipt Date: 20110926
  Transmission Date: 20111222
  Serious: Yes (Death, Other)
  Sender: FDA-Public Use
  Company Number: None

PATIENT
  Age: 69 Year
  Sex: Male
  Weight: 108.86 kg

DRUGS (2)
  1. HEMATOPOETIC PROGENITOR CELLS HUMAN [Suspect]
     Indication: DIFFUSE LARGE B-CELL LYMPHOMA RECURRENT
     Dates: start: 20110720, end: 20110720
  2. CELLS, NOS [Concomitant]

REACTIONS (1)
  - ENGRAFT FAILURE [None]
